FAERS Safety Report 24755947 (Version 1)
Quarter: 2024Q4

REPORT INFORMATION
  Report Type: Spontaneous
  Country: FR (occurrence: FR)
  Receive Date: 20241219
  Receipt Date: 20241219
  Transmission Date: 20250114
  Serious: Yes (Hospitalization)
  Sender: PRINSTON PHARMACEUTICAL
  Company Number: FR-PRINSTON PHARMACEUTICAL INC.-2024PRN00447

PATIENT
  Age: 59 Year
  Sex: Male

DRUGS (1)
  1. DOXYCYCLINE [Suspect]
     Active Substance: DOXYCYCLINE
     Indication: Infection

REACTIONS (1)
  - Eosinophilic myocarditis [Recovered/Resolved]
